FAERS Safety Report 9250889 (Version 5)
Quarter: 2013Q3

REPORT INFORMATION
  Report Type: Report from Study
  Country: DE (occurrence: DE)
  Receive Date: 20130424
  Receipt Date: 20130708
  Transmission Date: 20140515
  Serious: Yes (Death, Life-Threatening, Hospitalization, Other)
  Sender: FDA-Public Use
  Company Number: PHHY2013DE038979

PATIENT
  Sex: Female
  Weight: 63 kg

DRUGS (13)
  1. AFINITOR [Suspect]
     Indication: BREAST CANCER METASTATIC
     Dosage: 5 MG, DAILY
     Route: 048
     Dates: start: 20130320, end: 20130417
  2. EXEMESTANE [Concomitant]
     Indication: BREAST CANCER METASTATIC
     Dosage: 25 MG, DAILY
     Route: 048
     Dates: start: 20130320, end: 20130424
  3. PANTOPRAZOLE [Concomitant]
     Dosage: 40 MG, DAILY
     Dates: start: 20090401
  4. FALITHROM [Concomitant]
     Dates: start: 20090301, end: 20130424
  5. IBANDRONIC ACID [Concomitant]
     Dosage: 6 MG, EVERY 28 DAYS
     Dates: start: 20081001
  6. IBUHEXAL//IBUPROFEN [Concomitant]
     Dosage: 2 DF, DAILY
     Route: 048
     Dates: start: 20090401
  7. CIPROFLOXACIN [Concomitant]
     Dosage: 2 DF, DAILY
     Route: 042
     Dates: start: 20130413, end: 20130420
  8. DUROGESIC [Concomitant]
     Dosage: 25 UG, DAILY
     Dates: start: 20130423, end: 20130424
  9. AMITRIPTYLIN [Concomitant]
     Dosage: 25 MG, DAILY
     Dates: start: 20130423, end: 20130424
  10. ACC 600 [Concomitant]
     Route: 042
     Dates: start: 20130420, end: 20130424
  11. PASPERTIN [Concomitant]
     Dates: start: 20130419, end: 20130421
  12. CEFUROXIME 700 [Concomitant]
     Dosage: 1500 MG, UNK
     Dates: start: 20130423, end: 20130424
  13. MORPHINE [Concomitant]
     Dosage: 100 MG, UNK
     Route: 042
     Dates: start: 20120424

REACTIONS (12)
  - General physical health deterioration [Fatal]
  - Nausea [Fatal]
  - Vomiting [Fatal]
  - Diarrhoea [Fatal]
  - Abdominal pain [Fatal]
  - Hepatic failure [Fatal]
  - Breast cancer metastatic [Fatal]
  - Malignant neoplasm progression [Fatal]
  - Metastases to liver [Fatal]
  - Aspartate aminotransferase increased [Fatal]
  - Gamma-glutamyltransferase increased [Fatal]
  - Abdominal pain upper [Fatal]
